FAERS Safety Report 5884991-8 (Version None)
Quarter: 2008Q3

REPORT INFORMATION
  Report Type: 
  Country: None (occurrence: None)
  Receive Date: 20080916
  Receipt Date: 20080912
  Transmission Date: 20090109
  Serious: Yes (Hospitalization)
  Sender: FDA-Public Use
  Company Number: US-BRISTOL-MYERS SQUIBB COMPANY-14109425

PATIENT
  Age: 63 Year
  Sex: Female

DRUGS (2)
  1. PROGRAF [Suspect]
     Indication: RENAL TRANSPLANT
     Route: 048
     Dates: start: 20070711
  2. CELLCEPT [Concomitant]
     Dates: start: 20050717

REACTIONS (2)
  - CLOSTRIDIUM DIFFICILE COLITIS [None]
  - ESCHERICHIA URINARY TRACT INFECTION [None]
